FAERS Safety Report 5742894-3 (Version None)
Quarter: 2008Q2

REPORT INFORMATION
  Report Type: 
  Country: None (occurrence: None)
  Receive Date: 20080515
  Receipt Date: 20080515
  Transmission Date: 20081010
  Serious: Yes (Other)
  Sender: FDA-Public Use
  Company Number: None

PATIENT
  Age: 63 Year
  Sex: Male
  Weight: 116.5744 kg

DRUGS (1)
  1. DIGITEK .125 MG. BERTEK [Suspect]
     Indication: ATRIAL FIBRILLATION
     Dosage: .125 MG 1 X DAILY ORAL
     Route: 048
     Dates: start: 20080131, end: 20080430

REACTIONS (2)
  - ASTHENIA [None]
  - PHARMACEUTICAL PRODUCT COMPLAINT [None]
